FAERS Safety Report 4447855-2 (Version None)
Quarter: 2004Q3

REPORT INFORMATION
  Report Type: 
  Country: None (occurrence: None)
  Receive Date: 20040812
  Receipt Date: 20040601
  Transmission Date: 20050211
  Serious: No
  Sender: FDA-Public Use
  Company Number: USA040668885

PATIENT
  Age: 56 Year
  Sex: Male
  Weight: 80 kg

DRUGS (3)
  1. CIALIS [Suspect]
     Dosage: 20 MG
     Dates: start: 20031219
  2. ATACAND [Concomitant]
  3. LOVASTATIN [Concomitant]

REACTIONS (2)
  - DYSPEPSIA [None]
  - STOMACH DISCOMFORT [None]
